FAERS Safety Report 23358304 (Version 1)
Quarter: 2024Q1

REPORT INFORMATION
  Report Type: Report from Study
  Country: KR (occurrence: KR)
  Receive Date: 20240102
  Receipt Date: 20240102
  Transmission Date: 20240410
  Serious: Yes (Life-Threatening, Hospitalization)
  Sender: FDA-Public Use
  Company Number: KR-JNJFOC-20240100851

PATIENT
  Age: 75 Year
  Sex: Male

DRUGS (64)
  1. APALUTAMIDE [Suspect]
     Active Substance: APALUTAMIDE
     Indication: Hormone-dependent prostate cancer
     Route: 048
     Dates: start: 20230817, end: 20231108
  2. PROPYSALIC NF [Concomitant]
     Indication: Rash
     Dosage: LOTION 2G TIMES/DAY, AS NEEDED
     Route: 062
     Dates: start: 20230817
  3. FEXOFENADINE HYDROCHLORIDE [Concomitant]
     Active Substance: FEXOFENADINE HYDROCHLORIDE
     Indication: Rash
     Route: 048
     Dates: start: 20230817
  4. XGEVA [Concomitant]
     Active Substance: DENOSUMAB
     Indication: Hormone-dependent prostate cancer
     Route: 058
     Dates: start: 20230817
  5. CALCIUM CARBONATE [Concomitant]
     Active Substance: CALCIUM CARBONATE
     Indication: Hormone-dependent prostate cancer
     Route: 048
     Dates: start: 20230914
  6. ASIDOL [Concomitant]
     Indication: Hormone-dependent prostate cancer
     Dosage: 1 MCG
     Route: 048
     Dates: start: 20230914, end: 20231203
  7. TAZOPERAN [Concomitant]
     Indication: Proctitis
     Route: 042
     Dates: start: 20231130, end: 20231130
  8. TAZOPERAN [Concomitant]
     Route: 042
     Dates: start: 20231201, end: 20231201
  9. TAZOPERAN [Concomitant]
     Route: 042
     Dates: start: 20231206
  10. PROFA [Concomitant]
     Indication: Drug reaction with eosinophilia and systemic symptoms
     Dosage: 1/100G/ML
     Route: 042
     Dates: start: 20231130, end: 20231130
  11. PLASMA SOLUTION A [Concomitant]
     Indication: Fluid replacement
     Route: 042
     Dates: start: 20231130, end: 20231130
  12. HUMULIN R [Concomitant]
     Active Substance: INSULIN HUMAN
     Indication: Hyperglycaemia
     Dosage: 50 UNITS
     Route: 042
     Dates: start: 20231212
  13. SODIUM CHLORIDE [Concomitant]
     Active Substance: SODIUM CHLORIDE
     Route: 042
     Dates: start: 20231212
  14. ALBUMIN HUMAN [Concomitant]
     Active Substance: ALBUMIN HUMAN
     Indication: Hypoalbuminaemia
     Dosage: 20%
     Route: 042
     Dates: start: 20231130, end: 20231205
  15. ALBUMIN HUMAN [Concomitant]
     Active Substance: ALBUMIN HUMAN
     Dosage: 5%
     Route: 042
     Dates: start: 20231205, end: 20231206
  16. ALBUMIN HUMAN [Concomitant]
     Active Substance: ALBUMIN HUMAN
     Dosage: 20%
     Route: 042
     Dates: start: 20231207, end: 20231213
  17. LIDOCAINE [Concomitant]
     Active Substance: LIDOCAINE
     Indication: Biopsy skin
     Route: 065
     Dates: start: 20231130, end: 20231130
  18. BEAROBAN [Concomitant]
     Indication: Infection prophylaxis
     Dosage: 1G
     Route: 062
     Dates: start: 20231130, end: 20231130
  19. DEXAMETHASONE [Concomitant]
     Active Substance: DEXAMETHASONE
     Indication: Drug reaction with eosinophilia and systemic symptoms
     Route: 030
     Dates: start: 20231130, end: 20231201
  20. PENIRAMIN [Concomitant]
     Indication: Drug reaction with eosinophilia and systemic symptoms
     Route: 030
     Dates: start: 20231130, end: 20231201
  21. PENIRAMIN [Concomitant]
     Route: 030
     Dates: start: 20231202, end: 20231202
  22. BEPOTASTINE [Concomitant]
     Active Substance: BEPOTASTINE
     Indication: Drug reaction with eosinophilia and systemic symptoms
     Route: 048
     Dates: start: 20231201, end: 20231207
  23. LERIZINE [Concomitant]
     Indication: Drug reaction with eosinophilia and systemic symptoms
     Route: 048
     Dates: start: 20231201, end: 20231204
  24. URSODIOL [Concomitant]
     Active Substance: URSODIOL
     Indication: Drug reaction with eosinophilia and systemic symptoms
     Route: 048
     Dates: start: 20231201, end: 20231201
  25. URSODIOL [Concomitant]
     Active Substance: URSODIOL
     Route: 048
     Dates: start: 20231202, end: 20231202
  26. URSODIOL [Concomitant]
     Active Substance: URSODIOL
     Route: 048
     Dates: start: 20231202
  27. GODEX [ADENINE HYDROCHLORIDE;CARNITINE OROTATE;CYANOCOBALAMIN;LIVER;PY [Concomitant]
     Indication: Drug reaction with eosinophilia and systemic symptoms
     Dosage: 3 CAPSULE
     Route: 048
     Dates: start: 20231201
  28. ORNITHINE ASPARTATE [Concomitant]
     Active Substance: ORNITHINE ASPARTATE
     Indication: Drug reaction with eosinophilia and systemic symptoms
     Route: 042
     Dates: start: 20231202, end: 20231206
  29. ORNITHINE ASPARTATE [Concomitant]
     Active Substance: ORNITHINE ASPARTATE
     Route: 042
     Dates: start: 20231207, end: 20231211
  30. METHYLPREDNISOLONE SODIUM SUCCINATE [Concomitant]
     Active Substance: METHYLPREDNISOLONE SODIUM SUCCINATE
     Indication: Drug reaction with eosinophilia and systemic symptoms
     Route: 042
     Dates: start: 20231201, end: 20231204
  31. METHYLPREDNISOLONE SODIUM SUCCINATE [Concomitant]
     Active Substance: METHYLPREDNISOLONE SODIUM SUCCINATE
     Route: 042
     Dates: start: 20231205, end: 20231206
  32. METHYLPREDNISOLONE SODIUM SUCCINATE [Concomitant]
     Active Substance: METHYLPREDNISOLONE SODIUM SUCCINATE
     Route: 042
     Dates: start: 20231206, end: 20231207
  33. METHYLPREDNISOLONE SODIUM SUCCINATE [Concomitant]
     Active Substance: METHYLPREDNISOLONE SODIUM SUCCINATE
     Route: 042
     Dates: start: 20231212, end: 20231214
  34. LEVOFLOXACIN [Concomitant]
     Active Substance: LEVOFLOXACIN
     Indication: Proctitis
     Route: 042
     Dates: start: 20231201, end: 20231204
  35. CEFTRIAXONE SODIUM [Concomitant]
     Active Substance: CEFTRIAXONE SODIUM
     Indication: Proctitis
     Route: 042
     Dates: start: 20231205, end: 20231206
  36. SULFAMETHOXAZOLE\TRIMETHOPRIM [Concomitant]
     Active Substance: SULFAMETHOXAZOLE\TRIMETHOPRIM
     Indication: Pneumocystis jirovecii pneumonia
     Dosage: 10 TABLET
     Route: 048
     Dates: start: 20231205, end: 20231206
  37. SULFAMETHOXAZOLE\TRIMETHOPRIM [Concomitant]
     Active Substance: SULFAMETHOXAZOLE\TRIMETHOPRIM
     Dosage: 20 TABLET
     Route: 048
     Dates: start: 20231207, end: 20231207
  38. SULFAMETHOXAZOLE\TRIMETHOPRIM [Concomitant]
     Active Substance: SULFAMETHOXAZOLE\TRIMETHOPRIM
     Dosage: 15 TABLET
     Route: 048
     Dates: start: 20231208
  39. ZITHROMAX [Concomitant]
     Active Substance: AZITHROMYCIN DIHYDRATE
     Indication: Pneumocystis jirovecii pneumonia
     Route: 048
     Dates: start: 20231205, end: 20231206
  40. LEVOFLOXACIN [Concomitant]
     Active Substance: LEVOFLOXACIN
     Indication: Pneumocystis jirovecii pneumonia
     Route: 042
     Dates: start: 20231206, end: 20231211
  41. ONEFLU [Concomitant]
     Indication: Pneumocystis jirovecii pneumonia
     Route: 042
     Dates: start: 20231206, end: 20231212
  42. TEICOPLANIN [Concomitant]
     Active Substance: TEICOPLANIN
     Indication: Pneumocystis jirovecii pneumonia
     Route: 042
     Dates: start: 20231213
  43. METHYSOL [Concomitant]
     Indication: Drug reaction with eosinophilia and systemic symptoms
     Route: 042
     Dates: start: 20231207, end: 20231211
  44. MIDAZOLAM [Concomitant]
     Active Substance: MIDAZOLAM
     Indication: Sedation
     Route: 042
     Dates: start: 20231208
  45. PROPOFOL [Concomitant]
     Active Substance: PROPOFOL
     Indication: Sedation
     Route: 042
     Dates: start: 20231206
  46. ULTIAN [Concomitant]
     Indication: Sedation
     Route: 042
     Dates: start: 20231206
  47. NOREPINEPHRINE BITARTRATE [Concomitant]
     Active Substance: NOREPINEPHRINE BITARTRATE
     Indication: Hypotension
     Route: 042
     Dates: start: 20231206
  48. ETOMIDATE [Concomitant]
     Active Substance: ETOMIDATE
     Indication: Endotracheal intubation
     Route: 042
     Dates: start: 20231216, end: 20231216
  49. ROCUMERON [Concomitant]
     Indication: Endotracheal intubation
     Route: 042
     Dates: start: 20231206, end: 20231206
  50. ENOXAPARIN SODIUM [Concomitant]
     Active Substance: ENOXAPARIN SODIUM
     Indication: Thrombosis prophylaxis
     Route: 058
     Dates: start: 20231206
  51. COMBIFLEX [CAFFEINE;PARACETAMOL;PHENYLTOLOXAMINE CITRATE;SALICYLAMIDE] [Concomitant]
     Indication: Nutritional supplementation
     Route: 042
     Dates: start: 20231206
  52. FURTMAN [Concomitant]
     Indication: Mineral supplementation
     Route: 042
     Dates: start: 20231206
  53. VITAMINS [Concomitant]
     Active Substance: VITAMINS
     Indication: Vitamin supplementation
     Route: 042
     Dates: start: 20231206
  54. FREAMINE [ALANINE;ARGININE;CYSTEINE HYDROCHLORIDE;GLYCINE;HISTIDINE;IS [Concomitant]
     Indication: Nutritional supplementation
     Route: 042
     Dates: start: 20231206
  55. AMINO ACIDS\DEXTROSE\ELECTROLYTES NOS\SOYBEAN OIL [Concomitant]
     Active Substance: AMINO ACIDS\DEXTROSE\ELECTROLYTES NOS\SOYBEAN OIL
     Indication: Nutritional supplementation
     Route: 042
     Dates: start: 20231207, end: 20231210
  56. DULACKHAN EASY [Concomitant]
     Indication: Prophylaxis
     Route: 048
     Dates: start: 20231202
  57. CALCIUM POLYCARBOPHIL [Concomitant]
     Active Substance: CALCIUM POLYCARBOPHIL
     Indication: Prophylaxis
     Route: 048
     Dates: start: 20231204
  58. AGIO [Concomitant]
     Indication: Constipation
     Route: 048
     Dates: start: 20231204, end: 20231205
  59. ONEALFA [Concomitant]
     Active Substance: ALFACALCIDOL
     Indication: Hormone-dependent prostate cancer
     Dosage: DOSE: 1 MCG
     Route: 048
     Dates: start: 20231204
  60. CALCIUM POLYSTYRENE SULFONATE [Concomitant]
     Active Substance: CALCIUM POLYSTYRENE SULFONATE
     Indication: Hyperglycaemia
     Route: 048
     Dates: start: 20231212
  61. CALCIUM POLYSTYRENE SULFONATE [Concomitant]
     Active Substance: CALCIUM POLYSTYRENE SULFONATE
     Route: 048
     Dates: start: 20231209, end: 20231209
  62. KASKA [Concomitant]
     Indication: Hyperglycaemia
     Route: 048
     Dates: start: 20231213
  63. PHOSTEN [Concomitant]
     Indication: Hyperglycaemia
     Route: 042
     Dates: start: 20231207, end: 20231208
  64. MUCOMYST [Concomitant]
     Active Substance: ACETYLCYSTEINE
     Indication: Pneumocystis jirovecii pneumonia
     Dates: start: 20231205, end: 20231206

REACTIONS (1)
  - Shock haemorrhagic [Recovered/Resolved]

NARRATIVE: CASE EVENT DATE: 20231218
